FAERS Safety Report 10342955 (Version 3)
Quarter: 2014Q3

REPORT INFORMATION
  Report Type: Report from Study
  Country: TW (occurrence: TW)
  Receive Date: 20140725
  Receipt Date: 20140812
  Transmission Date: 20150326
  Serious: Yes (Hospitalization)
  Sender: FDA-Public Use
  Company Number: PHHY2012TW068646

PATIENT
  Age: 55 Year
  Sex: Male
  Weight: 56 kg

DRUGS (1)
  1. NEORAL [Suspect]
     Active Substance: CYCLOSPORINE
     Indication: RENAL TRANSPLANT
     Dosage: 50 MG
     Route: 048
     Dates: start: 20110926

REACTIONS (5)
  - Hydronephrosis [Recovered/Resolved]
  - Oedema peripheral [Recovering/Resolving]
  - Urine abnormality [Recovered/Resolved]
  - Nephrotic syndrome [Recovered/Resolved]
  - Deep vein thrombosis [Recovering/Resolving]

NARRATIVE: CASE EVENT DATE: 20120520
